FAERS Safety Report 7378941-5 (Version None)
Quarter: 2011Q1

REPORT INFORMATION
  Report Type: 
  Country: None (occurrence: None)
  Receive Date: 20110328
  Receipt Date: 20110324
  Transmission Date: 20110831
  Serious: Yes (Death, Other)
  Sender: FDA-Public Use
  Company Number: PHHY2011US24310

PATIENT
  Age: 77 Year

DRUGS (1)
  1. WARFARIN [Suspect]

REACTIONS (4)
  - HAEMATOMA [None]
  - HAEMORRHAGE INTRACRANIAL [None]
  - BLOOD PRESSURE SYSTOLIC INCREASED [None]
  - DEATH [None]
